FAERS Safety Report 4630413-4 (Version None)
Quarter: 2005Q2

REPORT INFORMATION
  Report Type: 
  Country: None (occurrence: None)
  Receive Date: 20050406
  Receipt Date: 20050321
  Transmission Date: 20051028
  Serious: Yes (Hospitalization)
  Sender: FDA-Public Use
  Company Number: KR-SANOFI-SYNTHELABO-A01200501817

PATIENT
  Age: 74 Year
  Sex: Female

DRUGS (4)
  1. STILNOX - (ZOLPIDEM) - 10 MG [Suspect]
     Indication: SLEEP DISORDER
     Dosage: 10 MG OD ORAL
     Route: 048
     Dates: start: 20050131, end: 20050202
  2. REOBIL (BIPHENYL DIMETHYLDICARBOXYLATE) [Concomitant]
  3. LEGALON (SILYMARIN) [Concomitant]
  4. ALEND (ALENDRONATE SODIUM) [Concomitant]

REACTIONS (2)
  - AMNESIA [None]
  - DELIRIUM [None]
